FAERS Safety Report 16717967 (Version 1)
Quarter: 2019Q3

REPORT INFORMATION
  Report Type: Spontaneous
  Country: PH (occurrence: PH)
  Receive Date: 20190819
  Receipt Date: 20190819
  Transmission Date: 20191005
  Serious: Yes (Hospitalization, Other)
  Sender: FDA-Public Use
  Company Number: PHHY2019PH187990

PATIENT
  Age: 67 Year
  Sex: Male

DRUGS (1)
  1. METFORMIN [Suspect]
     Active Substance: METFORMIN HYDROCHLORIDE
     Indication: TYPE 2 DIABETES MELLITUS
     Dosage: 500 MG, QD
     Route: 065

REACTIONS (6)
  - Pruritus [Recovered/Resolved]
  - Skin hyperpigmentation [Recovered/Resolved]
  - Skin exfoliation [Recovered/Resolved]
  - Photosensitivity reaction [Recovered/Resolved]
  - Skin lesion [Recovered/Resolved]
  - Staphylococcal infection [Unknown]
